FAERS Safety Report 8198429-1 (Version None)
Quarter: 2012Q1

REPORT INFORMATION
  Report Type: 
  Country: None (occurrence: None)
  Receive Date: 20120309
  Receipt Date: 20120301
  Transmission Date: 20120608
  Serious: Yes (Hospitalization, Congenital Anomaly, Other)
  Sender: FDA-Public Use
  Company Number: PHHY2012DK018362

PATIENT
  Sex: Female

DRUGS (3)
  1. METHIMAZOLE [Suspect]
     Dosage: 30 MG, QD
     Route: 064
  2. METHIMAZOLE [Suspect]
     Dosage: 15 MG, QD
     Route: 064
  3. METHIMAZOLE [Suspect]
     Dosage: 17.5 MG, QD
     Route: 064

REACTIONS (4)
  - FOETAL EXPOSURE DURING PREGNANCY [None]
  - OVARIAN CYST [None]
  - NEONATAL RESPIRATORY DISTRESS SYNDROME [None]
  - GOITRE CONGENITAL [None]
